FAERS Safety Report 8071401-8 (Version None)
Quarter: 2012Q1

REPORT INFORMATION
  Report Type: 
  Country: None (occurrence: None)
  Receive Date: 20120125
  Receipt Date: 20120116
  Transmission Date: 20120608
  Serious: Yes (Death, Life-Threatening, Hospitalization, Other)
  Sender: FDA-Public Use
  Company Number: CA-GILEAD-2009-0020646

PATIENT
  Sex: Female

DRUGS (2)
  1. CEFTIN [Concomitant]
     Indication: SINUSITIS
     Dates: start: 20081203, end: 20081209
  2. ATRIPLA [Suspect]
     Indication: HIV INFECTION
     Dosage: 400 MG, QD
     Route: 048
     Dates: start: 20080912, end: 20090202

REACTIONS (2)
  - DRUG LEVEL INCREASED [None]
  - ACUTE HEPATIC FAILURE [None]
